FAERS Safety Report 17307743 (Version 5)
Quarter: 2021Q3

REPORT INFORMATION
  Report Type: Report from Study
  Country: FR (occurrence: FR)
  Receive Date: 20200123
  Receipt Date: 20210726
  Transmission Date: 20211014
  Serious: Yes (Death, Hospitalization, Other)
  Sender: FDA-Public Use
  Company Number: FR-SHIRE-FR202002460

PATIENT
  Age: 3 Year
  Sex: Male

DRUGS (2)
  1. IDURSULFASE [Suspect]
     Active Substance: IDURSULFASE
     Indication: MUCOPOLYSACCHARIDOSIS II
     Dosage: 0.67 MILLIGRAM/KILOGRAM, 1X/WEEK
     Route: 042
     Dates: start: 20090504
  2. IDURSULFASE [Suspect]
     Active Substance: IDURSULFASE
     Dosage: 0.57 MILLIGRAM/KILOGRAM, 1X/WEEK
     Route: 042
     Dates: start: 20130418, end: 20191204

REACTIONS (10)
  - Tachypnoea [Recovered/Resolved]
  - Staphylococcal sepsis [Fatal]
  - Hypotension [Recovered/Resolved]
  - Livedo reticularis [Recovered/Resolved]
  - Tachycardia [Recovered/Resolved]
  - Body temperature increased [Recovered/Resolved]
  - Sepsis [Fatal]
  - Encephalitis [Unknown]
  - Chills [Recovered/Resolved]
  - Vomiting [Recovered/Resolved]

NARRATIVE: CASE EVENT DATE: 20090812
